FAERS Safety Report 12181737 (Version 2)
Quarter: 2016Q4

REPORT INFORMATION
  Report Type: Spontaneous
  Country: US (occurrence: US)
  Receive Date: 20160315
  Receipt Date: 20161103
  Transmission Date: 20170207
  Serious: No
  Sender: FDA-Public Use
  Company Number: GXBR2016US000770

PATIENT
  Sex: Female
  Weight: 104.31 kg

DRUGS (8)
  1. HYDROCODONE [Concomitant]
     Active Substance: HYDROCODONE
     Indication: NECK PAIN
     Dosage: 10MG HYDROCONE / 235MG ACETAMINOPHEN, QID
     Route: 048
     Dates: start: 2011
  2. EFFEXOR XR [Concomitant]
     Active Substance: VENLAFAXINE HYDROCHLORIDE
     Indication: PANIC ATTACK
     Dosage: 75 MG, QD
     Route: 048
     Dates: start: 2015
  3. ATORVASTAN [Concomitant]
     Indication: BLOOD CHOLESTEROL
     Dosage: 10 MG, QHS
     Route: 048
     Dates: start: 1996
  4. AMLODIPINE [Concomitant]
     Active Substance: AMLODIPINE BESYLATE
     Indication: HYPERTENSION
     Dosage: 5 MG, QD
     Route: 048
     Dates: start: 2014
  5. SYNTHROID [Concomitant]
     Active Substance: LEVOTHYROXINE SODIUM
     Indication: HYPOTHYROIDISM
     Dosage: 0.1 UG, QD
     Route: 048
  6. EFFEXOR XR [Concomitant]
     Active Substance: VENLAFAXINE HYDROCHLORIDE
     Indication: ANXIETY
  7. ALPRAZOLAM TABLETS USP [Suspect]
     Active Substance: ALPRAZOLAM
     Indication: PANIC ATTACK
     Dosage: 1 MG, QID
     Route: 048
  8. OMEPRAZOLE. [Concomitant]
     Active Substance: OMEPRAZOLE
     Indication: GASTROOESOPHAGEAL REFLUX DISEASE
     Dosage: 40 MG, QD
     Route: 048
     Dates: start: 1996

REACTIONS (1)
  - Drug ineffective [Unknown]
